FAERS Safety Report 19240694 (Version 1)
Quarter: 2021Q2

REPORT INFORMATION
  Report Type: Spontaneous
  Country: US (occurrence: US)
  Receive Date: 20210511
  Receipt Date: 20210511
  Transmission Date: 20210717
  Serious: No
  Sender: FDA-Public Use
  Company Number: US-ELI_LILLY_AND_COMPANY-US202105003018

PATIENT
  Sex: Female

DRUGS (1)
  1. INSULIN LISPRO JUNIOR KWIKPEN [Suspect]
     Active Substance: INSULIN LISPRO
     Indication: PRODUCT USED FOR UNKNOWN INDICATION
     Dosage: 1 U, UNKNOWN
     Route: 058
     Dates: start: 2019

REACTIONS (3)
  - Product dose omission issue [Recovering/Resolving]
  - Blood glucose increased [Recovering/Resolving]
  - Injection site pain [Recovering/Resolving]
